FAERS Safety Report 12146165 (Version 1)
Quarter: 2016Q1

REPORT INFORMATION
  Report Type: Spontaneous
  Country: US (occurrence: US)
  Receive Date: 20160304
  Receipt Date: 20160304
  Transmission Date: 20160526
  Serious: No
  Sender: FDA-Public Use
  Company Number: US-MYLANLABS-2015M1039923

PATIENT
  Age: 23 Year
  Sex: Female
  Weight: 58.96 kg

DRUGS (2)
  1. LIDOCAINE PATCH [Suspect]
     Active Substance: LIDOCAINE
     Indication: PAIN
     Dosage: 3 DF, QD, ON 12 HRS, OFF 12 HRS
     Route: 003
     Dates: start: 20151108, end: 20151108
  2. LIDOCAINE PATCH [Suspect]
     Active Substance: LIDOCAINE
     Indication: OFF LABEL USE

REACTIONS (5)
  - Application site rash [Not Recovered/Not Resolved]
  - Product quality issue [Recovered/Resolved]
  - Application site pain [Recovered/Resolved]
  - Product adhesion issue [Recovered/Resolved]
  - Scratch [Not Recovered/Not Resolved]

NARRATIVE: CASE EVENT DATE: 20151108
